FAERS Safety Report 5383040-8 (Version None)
Quarter: 2007Q3

REPORT INFORMATION
  Report Type: 
  Country: None (occurrence: None)
  Receive Date: 20070705
  Receipt Date: 20070621
  Transmission Date: 20080115
  Serious: No
  Sender: FDA-Public Use
  Company Number: TIF2007A00083

PATIENT
  Age: 11 Year
  Sex: Male

DRUGS (3)
  1. LANSOX (LANSOPRAZOLE) [Suspect]
     Indication: DYSPEPSIA
     Dosage: 30 MG
     Route: 048
     Dates: start: 20070524, end: 20070525
  2. LANSOX (LANSOPRAZOLE) [Suspect]
     Indication: NAUSEA
     Dosage: 30 MG
     Route: 048
     Dates: start: 20070524, end: 20070525
  3. RIFACOL (RIFAXIMIN) [Suspect]
     Dates: start: 20070519, end: 20070525

REACTIONS (1)
  - VISUAL DISTURBANCE [None]
